FAERS Safety Report 8299455-4 (Version None)
Quarter: 2012Q2

REPORT INFORMATION
  Report Type: 
  Country: None (occurrence: None)
  Receive Date: 20120419
  Receipt Date: 20120412
  Transmission Date: 20120825
  Serious: No
  Sender: FDA-Public Use
  Company Number: US-BAYER-2012-037853

PATIENT

DRUGS (2)
  1. EXTRA STRENGTH TYLENOL [Concomitant]
  2. ALEVE (CAPLET) [Suspect]
     Indication: DYSMENORRHOEA
     Route: 048

REACTIONS (2)
  - VOMITING [None]
  - MUSCLE SPASMS [None]
